FAERS Safety Report 9149140 (Version 2)
Quarter: 2013Q3

REPORT INFORMATION
  Report Type: Spontaneous
  Country: US (occurrence: US)
  Receive Date: 20130308
  Receipt Date: 20130925
  Transmission Date: 20140515
  Serious: No
  Sender: FDA-Public Use
  Company Number: US-PFIZER INC-2013030150

PATIENT
  Age: 51 Year
  Sex: Female

DRUGS (3)
  1. XALKORI [Suspect]
     Indication: NON-SMALL CELL LUNG CANCER
     Dosage: 250 MG, 2X/DAY
     Dates: start: 20121101
  2. XALKORI [Suspect]
     Dosage: 200 MG, 2X/DAY
  3. XALKORI [Suspect]
     Dosage: 200 MG, 2X/DAY

REACTIONS (5)
  - Diarrhoea [Unknown]
  - Blood glucose decreased [Unknown]
  - Blood pressure decreased [Unknown]
  - Abdominal pain [Unknown]
  - Flatulence [Unknown]
